FAERS Safety Report 13885240 (Version 1)
Quarter: 2017Q3

REPORT INFORMATION
  Report Type: Spontaneous
  Country: US (occurrence: US)
  Receive Date: 20170821
  Receipt Date: 20170821
  Transmission Date: 20171127
  Serious: No
  Sender: FDA-Public Use
  Company Number: US-BAYER-2017-158293

PATIENT
  Age: 53 Year
  Sex: Female
  Weight: 94 kg

DRUGS (1)
  1. MIRALAX [Suspect]
     Active Substance: POLYETHYLENE GLYCOL 3350
     Indication: ASTHMA
     Dosage: UNK
     Route: 065
     Dates: start: 201706, end: 201708

REACTIONS (1)
  - Weight decreased [Unknown]
